FAERS Safety Report 7014585-2 (Version None)
Quarter: 2010Q3

REPORT INFORMATION
  Report Type: 
  Country: None (occurrence: None)
  Receive Date: 20100927
  Receipt Date: 20100917
  Transmission Date: 20110219
  Serious: Yes (Disabling)
  Sender: FDA-Public Use
  Company Number: DE-ROCHE-464622

PATIENT
  Sex: Male
  Weight: 67 kg

DRUGS (6)
  1. AVASTIN [Suspect]
     Route: 042
     Dates: start: 20060606
  2. FLUOROURACIL [Concomitant]
     Dosage: DRUG REPORTED AS 5-FU 400. GIVEN OVER 24 HOURS.
     Route: 042
     Dates: start: 20050501
  3. IRINOTECAN HCL [Concomitant]
     Route: 042
     Dates: start: 20060601
  4. CALCIUMFOLINAT [Concomitant]
     Route: 042
     Dates: start: 20050501
  5. NOVALGIN [Concomitant]
     Route: 048
     Dates: start: 20060401
  6. CORTICOSTEROIDS [Concomitant]
     Route: 042
     Dates: start: 20060606

REACTIONS (1)
  - ARTHRITIS [None]
